FAERS Safety Report 20933834 (Version 1)
Quarter: 2022Q2

REPORT INFORMATION
  Report Type: Spontaneous
  Country: US (occurrence: None)
  Receive Date: 20220607
  Receipt Date: 20220607
  Transmission Date: 20220721
  Serious: No
  Sender: FDA-Public Use
  Company Number: None

PATIENT
  Age: 70 Year
  Sex: Female
  Weight: 71.67 kg

DRUGS (4)
  1. FORTEO [Suspect]
     Active Substance: TERIPARATIDE
     Indication: Senile osteoporosis
     Dosage: OTHER STRENGTH : 600/2.4 UG/ML;?FREQUENCY : DAILY;?
     Route: 057
     Dates: start: 202202
  2. FORTEO [Suspect]
     Active Substance: TERIPARATIDE
     Indication: Rheumatoid arthritis
  3. RINVOQ [Suspect]
     Active Substance: UPADACITINIB
     Indication: Senile osteoporosis
     Dosage: FREQUENCY : DAILY;?
     Route: 048
     Dates: start: 202111
  4. RINVOQ [Suspect]
     Active Substance: UPADACITINIB
     Indication: Rheumatoid arthritis

REACTIONS (2)
  - Bronchitis [None]
  - Therapy interrupted [None]
